FAERS Safety Report 5198125-9 (Version None)
Quarter: 2006Q4

REPORT INFORMATION
  Report Type: 
  Country: None (occurrence: None)
  Receive Date: 20061228
  Receipt Date: 20061228
  Transmission Date: 20070319
  Serious: Yes (Other)
  Sender: FDA-Public Use
  Company Number: None

PATIENT
  Sex: Female
  Weight: 87.5442 kg

DRUGS (2)
  1. FOSAMAX [Suspect]
     Indication: OSTEOPENIA
     Dosage: 70 MG WEEKLY PO
     Route: 048
     Dates: start: 20001101
  2. FOSAMAX [Suspect]
     Indication: OSTEOPENIA
     Dosage: 70 MG WEEKLY PO
     Route: 048
     Dates: start: 20060401

REACTIONS (3)
  - FOOT FRACTURE [None]
  - IMPAIRED HEALING [None]
  - STRESS FRACTURE [None]
